FAERS Safety Report 10244607 (Version 1)
Quarter: 2014Q2

REPORT INFORMATION
  Report Type: Spontaneous
  Country: US (occurrence: US)
  Receive Date: 20140618
  Receipt Date: 20140618
  Transmission Date: 20141212
  Serious: Yes (Other)
  Sender: FDA-Public Use
  Company Number: US-GLAXOSMITHKLINE-A1077429A

PATIENT
  Sex: Female

DRUGS (1)
  1. ADVAIR [Suspect]
     Indication: BRONCHITIS CHRONIC
     Route: 065

REACTIONS (3)
  - Pulmonary congestion [Unknown]
  - Wheezing [Unknown]
  - Drug administration error [Unknown]
